FAERS Safety Report 19811276 (Version 1)
Quarter: 2021Q3

REPORT INFORMATION
  Report Type: Spontaneous
  Country: AU (occurrence: AU)
  Receive Date: 20210909
  Receipt Date: 20210909
  Transmission Date: 20211014
  Serious: Yes (Hospitalization, Other)
  Sender: FDA-Public Use
  Company Number: AU-LUPIN PHARMACEUTICALS INC.-2021-16669

PATIENT
  Age: 23 Year
  Sex: Male

DRUGS (15)
  1. METHANDROSTENOLONE [Suspect]
     Active Substance: METHANDROSTENOLONE
     Indication: PERFORMANCE ENHANCING PRODUCT USE
     Dosage: UNK
     Route: 065
  2. TRENBOLONE [Suspect]
     Active Substance: TRENBOLONE
     Indication: PERFORMANCE ENHANCING PRODUCT USE
     Dosage: UNK
     Route: 065
  3. EPINEPHRINE. [Suspect]
     Active Substance: EPINEPHRINE
     Indication: TOXICITY TO VARIOUS AGENTS
     Dosage: UNK
     Route: 042
  4. SODIUM BICARBONATE. [Suspect]
     Active Substance: SODIUM BICARBONATE
     Indication: TOXICITY TO VARIOUS AGENTS
     Dosage: UNK
     Route: 065
  5. ROCURONIUM [Concomitant]
     Active Substance: ROCURONIUM BROMIDE
     Indication: ENDOTRACHEAL INTUBATION
     Dosage: UNK
     Route: 065
  6. CHARCOAL [Suspect]
     Active Substance: ACTIVATED CHARCOAL
     Indication: TOXICITY TO VARIOUS AGENTS
     Dosage: UNK
     Route: 065
  7. GLUCOSE [Suspect]
     Active Substance: DEXTROSE
     Indication: TOXICITY TO VARIOUS AGENTS
     Dosage: UNK
     Route: 042
  8. CALCIUM ACETATE. [Suspect]
     Active Substance: CALCIUM ACETATE
     Indication: TOXICITY TO VARIOUS AGENTS
     Dosage: UNK
     Route: 042
  9. INSULIN [Suspect]
     Active Substance: INSULIN NOS
     Indication: TOXICITY TO VARIOUS AGENTS
     Dosage: UNK
     Route: 042
  10. SODIUM CHLORIDE. [Suspect]
     Active Substance: SODIUM CHLORIDE
     Dosage: UNK
     Route: 042
  11. MIDAZOLAM. [Concomitant]
     Active Substance: MIDAZOLAM
     Indication: ENDOTRACHEAL INTUBATION
     Dosage: UNK
     Route: 065
  12. PROPOFOL. [Concomitant]
     Active Substance: PROPOFOL
     Indication: ENDOTRACHEAL INTUBATION
     Dosage: UNK
     Route: 065
  13. SODIUM GLUCONATE. [Suspect]
     Active Substance: SODIUM GLUCONATE
     Indication: TOXICITY TO VARIOUS AGENTS
     Dosage: UNK
     Route: 065
  14. DIAZEPAM. [Suspect]
     Active Substance: DIAZEPAM
     Indication: TOXICITY TO VARIOUS AGENTS
     Dosage: UNK
     Route: 042
  15. TADALAFIL. [Suspect]
     Active Substance: TADALAFIL
     Indication: PERFORMANCE ENHANCING PRODUCT USE
     Dosage: UNK
     Route: 065

REACTIONS (2)
  - Drug ineffective [Unknown]
  - Drug abuse [Unknown]
